FAERS Safety Report 5011007-8 (Version None)
Quarter: 2006Q2

REPORT INFORMATION
  Report Type: 
  Country: None (occurrence: None)
  Receive Date: 20060523
  Receipt Date: 20060509
  Transmission Date: 20061013
  Serious: Yes (Death, Other)
  Sender: FDA-Public Use
  Company Number: 2006P1000122

PATIENT
  Age: 68 Year
  Sex: Male
  Weight: 90 kg

DRUGS (10)
  1. RETEPLASE                   (RETEPLASE) [Suspect]
     Indication: ACUTE MYOCARDIAL INFARCTION
     Dosage: 5 IU; IX; IVBOL
     Dates: start: 20060220, end: 20060220
  2. REOPRO [Suspect]
     Indication: ACUTE MYOCARDIAL INFARCTION
     Dosage: 11.2 ML;1X;IVBOL; 4.0 ML;QH;IV
     Route: 040
     Dates: start: 20060220, end: 20060220
  3. HEPARIN [Concomitant]
  4. ACETYLSALICYLIC ACID SRT [Concomitant]
  5. LIDOCAINE [Concomitant]
  6. AMIODARONE HCL [Concomitant]
  7. MIDAZZOLAM [Concomitant]
  8. PANTOPRAZOLE [Concomitant]
  9. HEPARIN [Concomitant]
  10. .............. [Concomitant]

REACTIONS (8)
  - ATRIOVENTRICULAR BLOCK COMPLETE [None]
  - BLOOD PRESSURE DECREASED [None]
  - CARDIAC ARREST [None]
  - CARDIAC TAMPONADE [None]
  - CORONARY ARTERY DISEASE [None]
  - MYOCARDIAL RUPTURE [None]
  - PERICARDIAL HAEMORRHAGE [None]
  - VENTRICULAR FIBRILLATION [None]
